FAERS Safety Report 4736128-6 (Version None)
Quarter: 2005Q3

REPORT INFORMATION
  Report Type: 
  Country: None (occurrence: None)
  Receive Date: 20050729
  Receipt Date: 20050527
  Transmission Date: 20060218
  Serious: Yes (Other)
  Sender: FDA-Public Use
  Company Number: GXBR2005US00987

PATIENT
  Age: 30 Year
  Sex: Female

DRUGS (2)
  1. RIBAVIRIN [Suspect]
     Dosage: FETAL DRUG EXPOSURE VIA FATHER
  2. PEGINTERFERON ALFA-2B (PEGINTERFERON ALFA-2B) [Suspect]
     Dosage: FETAL DRUG EXPOSURE VIA FATHER

REACTIONS (2)
  - ABORTION SPONTANEOUS [None]
  - DRUG EXPOSURE DURING PREGNANCY [None]
